FAERS Safety Report 16414399 (Version 1)
Quarter: 2019Q3

REPORT INFORMATION
  Report Type: Spontaneous
  Country: US (occurrence: US)
  Receive Date: 20190610
  Receipt Date: 20190610
  Transmission Date: 20191004
  Serious: Yes (Disabling)
  Sender: FDA-Public Use
  Company Number: None

PATIENT
  Age: 56 Year
  Sex: Female
  Weight: 89.1 kg

DRUGS (1)
  1. MAGNEVIST [Suspect]
     Active Substance: GADOPENTETATE DIMEGLUMINE
     Indication: NUCLEAR MAGNETIC RESONANCE IMAGING
     Dates: start: 20100304

REACTIONS (26)
  - Muscle fatigue [None]
  - Palpitations [None]
  - Tinnitus [None]
  - Disability [None]
  - Injection site swelling [None]
  - Thrombosis [None]
  - Neuropathy peripheral [None]
  - Formication [None]
  - Bone pain [None]
  - Vision blurred [None]
  - Dry eye [None]
  - Eye irritation [None]
  - Paraesthesia [None]
  - Dyspepsia [None]
  - Nephrogenic systemic fibrosis [None]
  - Insomnia [None]
  - Fatigue [None]
  - Cognitive disorder [None]
  - Feeling abnormal [None]
  - Weight increased [None]
  - Pruritus [None]
  - Dyspnoea [None]
  - Cough [None]
  - Skin odour abnormal [None]
  - Nasal abscess [None]
  - Skin texture abnormal [None]

NARRATIVE: CASE EVENT DATE: 20100304
